FAERS Safety Report 25387343 (Version 1)
Quarter: 2025Q2

REPORT INFORMATION
  Report Type: Report from Study
  Country: CA (occurrence: CA)
  Receive Date: 20250602
  Receipt Date: 20250602
  Transmission Date: 20250716
  Serious: Yes (Hospitalization, Other)
  Sender: JOHNSON AND JOHNSON
  Company Number: CA-JNJFOC-20250433272

PATIENT
  Age: 60 Year
  Sex: Female

DRUGS (4)
  1. SIMPONI [Suspect]
     Active Substance: GOLIMUMAB
     Indication: Rheumatoid arthritis
     Route: 058
     Dates: start: 20210413
  2. SIMPONI [Suspect]
     Active Substance: GOLIMUMAB
     Route: 058
     Dates: start: 20210413
  3. SIMPONI [Suspect]
     Active Substance: GOLIMUMAB
     Route: 058
     Dates: start: 20210413
  4. SIMPONI [Suspect]
     Active Substance: GOLIMUMAB
     Route: 058
     Dates: start: 20250525

REACTIONS (9)
  - Rheumatoid arthritis [Unknown]
  - Cholelithiasis [Unknown]
  - Addison^s disease [Unknown]
  - Fatigue [Unknown]
  - Decreased appetite [Unknown]
  - Headache [Unknown]
  - Hot flush [Unknown]
  - Chills [Unknown]
  - Off label use [Unknown]

NARRATIVE: CASE EVENT DATE: 20250401
